FAERS Safety Report 5399581-3 (Version None)
Quarter: 2007Q3

REPORT INFORMATION
  Report Type: 
  Country: None (occurrence: None)
  Receive Date: 20070727
  Receipt Date: 20070712
  Transmission Date: 20080115
  Serious: Yes (Hospitalization, Other)
  Sender: FDA-Public Use
  Company Number: US-PFIZER INC-2007037570

PATIENT
  Sex: Male
  Weight: 80.7 kg

DRUGS (1)
  1. CELEBREX [Suspect]
     Indication: BACK PAIN
     Dates: start: 20040501, end: 20040723

REACTIONS (6)
  - ANGINA PECTORIS [None]
  - ANXIETY [None]
  - CEREBROVASCULAR DISORDER [None]
  - DEPRESSION [None]
  - MYOCARDIAL INFARCTION [None]
  - SUPERFICIAL INJURY OF EYE [None]
